FAERS Safety Report 18986428 (Version 1)
Quarter: 2021Q1

REPORT INFORMATION
  Report Type: Spontaneous
  Country: CA (occurrence: CA)
  Receive Date: 20210309
  Receipt Date: 20210309
  Transmission Date: 20210420
  Serious: Yes (Death, Hospitalization, Other)
  Sender: FDA-Public Use
  Company Number: CA-ASTELLAS-2021US008354

PATIENT
  Sex: Male

DRUGS (4)
  1. DAURISMO [Suspect]
     Active Substance: GLASDEGIB
     Indication: PRODUCT USED FOR UNKNOWN INDICATION
     Route: 048
     Dates: start: 20201223
  2. XOSPATA [Suspect]
     Active Substance: GILTERITINIB
     Indication: ACUTE LEUKAEMIA
     Route: 048
     Dates: start: 20201222, end: 20210205
  3. METFORMIN [Concomitant]
     Active Substance: METFORMIN HYDROCHLORIDE
     Indication: PRODUCT USED FOR UNKNOWN INDICATION
     Dosage: UNK UNK, UNKNOWN FREQ.
     Route: 065
  4. SYNTHROID [Concomitant]
     Active Substance: LEVOTHYROXINE SODIUM
     Indication: PRODUCT USED FOR UNKNOWN INDICATION
     Dosage: UNK UNK, UNKNOWN FREQ.
     Route: 065

REACTIONS (6)
  - Pneumonia [Fatal]
  - Renal failure [Fatal]
  - Fluid overload [Unknown]
  - Anaemia of malignant disease [Unknown]
  - Underdose [Unknown]
  - Arthritis [Unknown]

NARRATIVE: CASE EVENT DATE: 20201222
